FAERS Safety Report 6257512-8 (Version None)
Quarter: 2009Q3

REPORT INFORMATION
  Report Type: 
  Country: None (occurrence: None)
  Receive Date: 20090706
  Receipt Date: 20090629
  Transmission Date: 20100115
  Serious: Yes (Life-Threatening, Hospitalization)
  Sender: FDA-Public Use
  Company Number: FR-ASTRAZENECA-2009SE03742

PATIENT
  Age: 17305 Day
  Sex: Female

DRUGS (11)
  1. DIPRIVAN [Suspect]
     Indication: ANAESTHESIA
     Route: 042
     Dates: start: 20081112, end: 20081112
  2. HYPNOVEL [Suspect]
     Indication: ANAESTHESIA
     Route: 042
     Dates: start: 20081112, end: 20081112
  3. ATROPINE SULFATE LAVOISIER [Suspect]
     Indication: ANAESTHESIA
     Route: 042
     Dates: start: 20081112, end: 20081112
  4. NIMBEX [Suspect]
     Indication: ANAESTHESIA
     Route: 042
     Dates: start: 20081112, end: 20081112
  5. ATACAND [Concomitant]
     Route: 048
  6. PARACETAMOL [Concomitant]
  7. EUTHYRAL [Concomitant]
  8. TOPALGIC [Concomitant]
  9. LYRICA [Concomitant]
  10. MIGPRIV [Concomitant]
  11. SURGESTONE [Concomitant]

REACTIONS (1)
  - ANAPHYLACTIC SHOCK [None]
